FAERS Safety Report 9954882 (Version 2)
Quarter: 2014Q1

REPORT INFORMATION
  Report Type: Report from Study
  Country: US (occurrence: US)
  Receive Date: 20140304
  Receipt Date: 20140304
  Transmission Date: 20141002
  Serious: No
  Sender: FDA-Public Use
  Company Number: US-ABBVIE-12P-163-1011905-00

PATIENT
  Age: 51 Year
  Sex: Female
  Weight: 136.2 kg

DRUGS (6)
  1. HUMIRA [Suspect]
     Indication: PSORIASIS
     Dates: start: 20121015, end: 20121015
  2. HUMIRA [Suspect]
     Indication: PSORIASIS
     Dosage: EVERY OTHER SUNDAY
     Dates: start: 2012, end: 2012
  3. XANAX [Concomitant]
     Indication: ANXIETY
  4. FLEXERIL [Concomitant]
     Indication: BACK PAIN
     Dosage: AS NEEDED; THE PATIENT DOES NOT USE THIS OFTEN
  5. FLEXERIL [Concomitant]
     Indication: MYALGIA
  6. TOPICAL STEROID [Concomitant]
     Indication: PRODUCT USED FOR UNKNOWN INDICATION
     Route: 061

REACTIONS (10)
  - Pruritus [Recovering/Resolving]
  - Urticaria [Recovering/Resolving]
  - Sinusitis [Not Recovered/Not Resolved]
  - Urticaria [Recovering/Resolving]
  - Upper respiratory tract infection [Recovering/Resolving]
  - Candida infection [Recovering/Resolving]
  - Pruritus [Unknown]
  - Cough [Unknown]
  - Rhinorrhoea [Unknown]
  - Insomnia [Unknown]
